FAERS Safety Report 21915656 (Version 2)
Quarter: 2023Q1

REPORT INFORMATION
  Report Type: Spontaneous
  Country: US (occurrence: US)
  Receive Date: 20230126
  Receipt Date: 20230202
  Transmission Date: 20230417
  Serious: Yes (Other)
  Sender: FDA-Public Use
  Company Number: US-Blueprint Medicines Corporation-SP-US-2023-000133

PATIENT
  Sex: Female

DRUGS (3)
  1. AYVAKIT [Suspect]
     Active Substance: AVAPRITINIB
     Indication: Systemic mastocytosis
     Route: 065
     Dates: start: 20220730
  2. AYVAKIT [Suspect]
     Active Substance: AVAPRITINIB
     Route: 065
     Dates: start: 20220730
  3. AYVAKIT [Suspect]
     Active Substance: AVAPRITINIB
     Route: 065

REACTIONS (10)
  - Loss of consciousness [Unknown]
  - Syncope [Unknown]
  - Muscle tightness [Unknown]
  - Dizziness [Unknown]
  - Influenza [Unknown]
  - Back disorder [Unknown]
  - Back pain [Unknown]
  - Vomiting [Unknown]
  - Product dose omission issue [Unknown]
  - Condition aggravated [Unknown]
